FAERS Safety Report 7012280-7 (Version None)
Quarter: 2010Q3

REPORT INFORMATION
  Report Type: 
  Country: None (occurrence: None)
  Receive Date: 20100922
  Receipt Date: 20100922
  Transmission Date: 20110219
  Serious: Yes (Death)
  Sender: FDA-Public Use
  Company Number: None

PATIENT
  Age: 38 Year
  Sex: Female
  Weight: 127.0072 kg

DRUGS (1)
  1. MAGNEVIST [Suspect]
     Indication: LIVER DISORDER
     Dosage: 20 ML 1 IV
     Route: 042
     Dates: start: 20100809

REACTIONS (3)
  - CARDIO-RESPIRATORY ARREST [None]
  - COMA [None]
  - CONTRAST MEDIA REACTION [None]
